FAERS Safety Report 8843288 (Version 1)
Quarter: 2012Q4

REPORT INFORMATION
  Report Type: 
  Country: CA (occurrence: CA)
  Receive Date: 20121016
  Receipt Date: 20121016
  Transmission Date: 20130627
  Serious: Yes (Other)
  Sender: FDA-Public Use
  Company Number: PHHO2005CA10030

PATIENT
  Sex: Male

DRUGS (3)
  1. SANDOSTATIN LAR (PATIENT BASIS) [Suspect]
     Indication: ACROMEGALY
     Dosage: 20 mg, QMO
     Dates: start: 20031220
  2. ASAPHEN [Concomitant]
  3. HYDROCHLOROTHIAZIDE [Concomitant]

REACTIONS (2)
  - Weight decreased [Unknown]
  - Hypertension [Unknown]
